FAERS Safety Report 4961002-X (Version None)
Quarter: 2006Q1

REPORT INFORMATION
  Report Type: 
  Country: None (occurrence: None)
  Receive Date: 20060328
  Receipt Date: 20060316
  Transmission Date: 20060701
  Serious: Yes (Life-Threatening, Hospitalization)
  Sender: FDA-Public Use
  Company Number: CN-2006-005950

PATIENT
  Age: 67 Year
  Sex: Female

DRUGS (1)
  1. ULTRAVIST 300 [Suspect]
     Indication: COMPUTERISED TOMOGRAM
     Dosage: 100 ML, 1 DOSE, INTRAVENOUS
     Route: 042
     Dates: start: 20060316, end: 20060316

REACTIONS (5)
  - ANAPHYLACTIC SHOCK [None]
  - CONFUSIONAL STATE [None]
  - HYPOTENSION [None]
  - NAUSEA [None]
  - PALLOR [None]
